FAERS Safety Report 6041698-4 (Version None)
Quarter: 2009Q1

REPORT INFORMATION
  Report Type: 
  Country: None (occurrence: None)
  Receive Date: 20090116
  Receipt Date: 20081017
  Transmission Date: 20090719
  Serious: No
  Sender: FDA-Public Use
  Company Number: US-BRISTOL-MYERS SQUIBB COMPANY-14374011

PATIENT
  Age: 16 Year
  Sex: Female

DRUGS (1)
  1. ABILIFY [Suspect]
     Indication: BIPOLAR DISORDER
     Dosage: ABILIFY 5MG, HALF TABLET, QD X 1 WEEK TAKEN INITIALLY.
     Dates: start: 20080910

REACTIONS (2)
  - AKATHISIA [None]
  - IRRITABILITY [None]
